FAERS Safety Report 4946624-4 (Version None)
Quarter: 2006Q1

REPORT INFORMATION
  Report Type: 
  Country: None (occurrence: None)
  Receive Date: 20060317
  Receipt Date: 20060222
  Transmission Date: 20060701
  Serious: Yes (Death, Other)
  Sender: FDA-Public Use
  Company Number: PHBS2006JP03049

PATIENT
  Age: 1 Year
  Sex: Male
  Weight: 8.8 kg

DRUGS (10)
  1. ALKERAN [Suspect]
     Indication: CORD BLOOD TRANSPLANT THERAPY
     Route: 042
     Dates: start: 20050618, end: 20050619
  2. MEROPENEM [Concomitant]
     Dosage: 3 G, TID
     Dates: start: 20050627
  3. PROFIF [Concomitant]
     Dosage: 40 MG, QD
     Dates: start: 20050611
  4. ACYCLOVIR [Concomitant]
     Dosage: 40 MG, TID
     Dates: start: 20050613
  5. SANDIMMUNE [Suspect]
     Indication: CORD BLOOD TRANSPLANT THERAPY
     Dosage: 25 MG/D
     Route: 042
     Dates: start: 20050620, end: 20050624
  6. SANDIMMUNE [Suspect]
     Dosage: 36 MG/D
     Route: 042
     Dates: start: 20050625, end: 20050628
  7. SANDIMMUNE [Suspect]
     Dosage: 12.5 MG/D
     Route: 042
     Dates: start: 20050629, end: 20050630
  8. METHOTREXATE [Concomitant]
     Indication: CORD BLOOD TRANSPLANT THERAPY
     Route: 042
  9. BUSULFAN [Concomitant]
  10. CYTARABINE [Concomitant]

REACTIONS (26)
  - BLOOD CREATININE INCREASED [None]
  - BLOOD UREA INCREASED [None]
  - BONE MARROW DISORDER [None]
  - C-REACTIVE PROTEIN INCREASED [None]
  - CARDIAC FAILURE [None]
  - CORD BLOOD TRANSPLANT THERAPY [None]
  - CREATININE RENAL CLEARANCE DECREASED [None]
  - DEATH [None]
  - DIARRHOEA [None]
  - DISSEMINATED INTRAVASCULAR COAGULATION [None]
  - DYSURIA [None]
  - ENTEROCOCCAL INFECTION [None]
  - ENTEROCOCCAL SEPSIS [None]
  - GRAFT COMPLICATION [None]
  - GRAFT VERSUS HOST DISEASE [None]
  - HYPERTENSION [None]
  - LIVER DISORDER [None]
  - MUCOUS MEMBRANE DISORDER [None]
  - PULMONARY HAEMORRHAGE [None]
  - PUTAMEN HAEMORRHAGE [None]
  - PYREXIA [None]
  - RENAL DISORDER [None]
  - RENAL FAILURE [None]
  - SKIN DISORDER [None]
  - STAPHYLOCOCCAL SEPSIS [None]
  - TRANSPLANT REJECTION [None]
